FAERS Safety Report 7487729-6 (Version None)
Quarter: 2011Q2

REPORT INFORMATION
  Report Type: 
  Country: None (occurrence: None)
  Receive Date: 20110518
  Receipt Date: 20110509
  Transmission Date: 20111010
  Serious: Yes (Hospitalization)
  Sender: FDA-Public Use
  Company Number: PHHY2011FR39919

PATIENT
  Age: 64 Year
  Sex: Male

DRUGS (8)
  1. BISOPROLOL FUMARATE [Concomitant]
  2. STABLON [Concomitant]
     Dosage: 12.5 MG, UNK
  3. VITAMIN B1 TAB [Concomitant]
  4. VOLTAREN [Suspect]
     Indication: BACK PAIN
     Dosage: UNK
     Dates: end: 20100719
  5. VITAMIN B6 [Concomitant]
  6. APROVEL [Concomitant]
     Dosage: 75 MG, UNK
  7. KESTINE [Concomitant]
     Dosage: 10 MG, UNK
  8. ZOPICLONE [Concomitant]
     Dosage: UNK

REACTIONS (11)
  - HAEMODYNAMIC INSTABILITY [None]
  - HAEMOGLOBIN DECREASED [None]
  - BLOOD PRESSURE DECREASED [None]
  - VARICES OESOPHAGEAL [None]
  - DUODENAL ULCER HAEMORRHAGE [None]
  - HEART RATE INCREASED [None]
  - DUODENAL ULCER [None]
  - DISORIENTATION [None]
  - ABDOMINAL PAIN [None]
  - RECTAL HAEMORRHAGE [None]
  - GENERAL PHYSICAL HEALTH DETERIORATION [None]
